FAERS Safety Report 21536588 (Version 8)
Quarter: 2023Q4

REPORT INFORMATION
  Report Type: Spontaneous
  Country: US (occurrence: US)
  Receive Date: 20221101
  Receipt Date: 20231218
  Transmission Date: 20240109
  Serious: Yes (Other)
  Sender: FDA-Public Use
  Company Number: US-PFIZER INC-PV202200092244

PATIENT
  Age: 65 Year
  Sex: Female
  Weight: 105.22 kg

DRUGS (4)
  1. IBRANCE [Suspect]
     Active Substance: PALBOCICLIB
     Indication: Breast cancer female
     Dosage: 125 MG, CYCLIC (1 PO DAYS 1-21 OUT OF 28 DAY CYCLE)
     Route: 048
  2. IBRANCE [Suspect]
     Active Substance: PALBOCICLIB
     Dosage: 100 MG
  3. IBRANCE [Suspect]
     Active Substance: PALBOCICLIB
     Dosage: 75 MG P.O. DAILY DAYS 1 TO 21/28 DAY CYCLE
  4. FASLODEX [Concomitant]
     Active Substance: FULVESTRANT
     Dosage: 500 MG IM DAY 1 DAY 15, DAY 29 AND THEN EVERY 28 DAYS.
     Route: 030

REACTIONS (6)
  - Neutrophil count decreased [Unknown]
  - Ageusia [Unknown]
  - Appetite disorder [Unknown]
  - Decreased appetite [Unknown]
  - Emotional disorder [Unknown]
  - White blood cell count decreased [Unknown]
